FAERS Safety Report 23870656 (Version 1)
Quarter: 2024Q2

REPORT INFORMATION
  Report Type: Spontaneous
  Country: TR (occurrence: TR)
  Receive Date: 20240518
  Receipt Date: 20240518
  Transmission Date: 20240716
  Serious: Yes (Other)
  Sender: FDA-Public Use
  Company Number: TR-IHL-000552

PATIENT
  Age: 7 Year
  Sex: Female

DRUGS (2)
  1. FLUOXETINE HYDROCHLORIDE [Suspect]
     Active Substance: FLUOXETINE HYDROCHLORIDE
     Indication: Anxiety
     Route: 065
  2. CLONAZEPAM [Suspect]
     Active Substance: CLONAZEPAM
     Indication: Anxiety
     Route: 065

REACTIONS (8)
  - Disinhibition [Unknown]
  - Psychomotor hyperactivity [Recovered/Resolved]
  - Restlessness [Unknown]
  - Sedation complication [Unknown]
  - Dyspnoea [Recovering/Resolving]
  - Agitation [Recovering/Resolving]
  - Paroxysmal sympathetic hyperactivity [Recovering/Resolving]
  - Drug ineffective [Unknown]
